FAERS Safety Report 26013779 (Version 2)
Quarter: 2025Q4

REPORT INFORMATION
  Report Type: Spontaneous
  Country: EU (occurrence: EU)
  Receive Date: 20251107
  Receipt Date: 20251202
  Transmission Date: 20260118
  Serious: Yes (Other)
  Sender: CELLTRION
  Company Number: EU-ALFASIGMA-2025-AER-06864

PATIENT

DRUGS (4)
  1. ADALIMUMAB [Suspect]
     Active Substance: ADALIMUMAB
     Indication: Product used for unknown indication
     Dosage: UNK
     Route: 065
     Dates: start: 202101
  2. ADALIMUMAB [Suspect]
     Active Substance: ADALIMUMAB
     Dosage: UNK
     Route: 065
     Dates: start: 202207, end: 202209
  3. METHOTREXATE SODIUM [Suspect]
     Active Substance: METHOTREXATE SODIUM
     Indication: Rheumatoid arthritis
     Dosage: 10 MILLIGRAM EVERY 1 WEEK
     Route: 065
     Dates: start: 202101
  4. METHOTREXATE SODIUM [Suspect]
     Active Substance: METHOTREXATE SODIUM
     Dosage: 10 MILLIGRAM EVERY 1 WEEK
     Route: 065
     Dates: start: 202207, end: 202209

REACTIONS (5)
  - Disease recurrence [Unknown]
  - Knee arthroplasty [Unknown]
  - Medical device removal [Unknown]
  - Device related infection [Unknown]
  - Pseudomonas test positive [Not Recovered/Not Resolved]

NARRATIVE: CASE EVENT DATE: 20220501
